FAERS Safety Report 18778627 (Version 3)
Quarter: 2021Q1

REPORT INFORMATION
  Report Type: Spontaneous
  Country: US (occurrence: US)
  Receive Date: 20210124
  Receipt Date: 20210215
  Transmission Date: 20210419
  Serious: No
  Sender: FDA-Public Use
  Company Number: US-GLAXOSMITHKLINE-US2021AMR009999

PATIENT
  Sex: Female

DRUGS (2)
  1. ZEJULA [Suspect]
     Active Substance: NIRAPARIB
     Indication: OVARIAN CANCER
     Dosage: 100MG ALTERNATING WITH 200MG Q.O.D
     Dates: start: 20210104
  2. ZEJULA [Suspect]
     Active Substance: NIRAPARIB
     Dosage: 200 MG, QD
     Dates: start: 20210104, end: 20210124

REACTIONS (12)
  - Hypertension [Not Recovered/Not Resolved]
  - Poor quality sleep [Unknown]
  - Laboratory test abnormal [Unknown]
  - Heart rate increased [Unknown]
  - Drug intolerance [Unknown]
  - Fatigue [Unknown]
  - Asthenia [Unknown]
  - Adverse drug reaction [Unknown]
  - Off label use [Unknown]
  - Ageusia [Unknown]
  - Ill-defined disorder [Unknown]
  - Decreased appetite [Unknown]
